FAERS Safety Report 17268900 (Version 1)
Quarter: 2020Q1

REPORT INFORMATION
  Report Type: Spontaneous
  Country: US (occurrence: US)
  Receive Date: 20200114
  Receipt Date: 20200114
  Transmission Date: 20200409
  Serious: No
  Sender: FDA-Public Use
  Company Number: None

PATIENT
  Age: 54 Year
  Sex: Female
  Weight: 78.75 kg

DRUGS (1)
  1. BORIC ACID OPHTHALMIC [Suspect]
     Active Substance: BORIC ACID
     Indication: DRY EYE
     Dosage: ?          QUANTITY:1 DROP(S);?
     Route: 047

REACTIONS (1)
  - Nausea [None]

NARRATIVE: CASE EVENT DATE: 20200114
